FAERS Safety Report 11751446 (Version 1)
Quarter: 2015Q4

REPORT INFORMATION
  Report Type: Spontaneous
  Country: US (occurrence: US)
  Receive Date: 20151118
  Receipt Date: 20151118
  Transmission Date: 20160304
  Serious: Yes (Life-Threatening)
  Sender: FDA-Public Use
  Company Number: US-NOVOPROD-423099

PATIENT
  Age: 51 Year
  Sex: Female
  Weight: 140.86 kg

DRUGS (3)
  1. NOVOLOG [Suspect]
     Active Substance: INSULIN ASPART
     Dosage: 40 U, SINGLE AS BASAL INSULIN
     Route: 058
     Dates: start: 20140911, end: 20140911
  2. NOVOLOG [Suspect]
     Active Substance: INSULIN ASPART
     Dosage: 30 U, SINGLE AS BOLUS INSULIN
     Route: 058
     Dates: start: 20140912, end: 20140912
  3. NOVOLOG [Suspect]
     Active Substance: INSULIN ASPART
     Indication: TYPE 1 DIABETES MELLITUS
     Dosage: 75 U, QD
     Route: 058
     Dates: start: 2008

REACTIONS (1)
  - Hypoglycaemic unconsciousness [Recovered/Resolved]

NARRATIVE: CASE EVENT DATE: 20140912
